FAERS Safety Report 23036286 (Version 1)
Quarter: 2023Q4

REPORT INFORMATION
  Report Type: Spontaneous
  Country: CN (occurrence: CN)
  Receive Date: 20231006
  Receipt Date: 20231006
  Transmission Date: 20240109
  Serious: Yes (Other)
  Sender: FDA-Public Use
  Company Number: CN-NOVOPROD-1121771

PATIENT
  Age: 84 Year
  Sex: Female
  Weight: 55 kg

DRUGS (1)
  1. INSULIN ASPART [Suspect]
     Active Substance: INSULIN ASPART
     Indication: Type 2 diabetes mellitus
     Dosage: 56 IU, QD (20 U IN THE MORNING, 16 U AT NOON AND 20 U IN THE EVENING)
     Dates: start: 2003

REACTIONS (2)
  - Lymphoma [Recovered/Resolved]
  - Coronary artery disease [Recovered/Resolved]

NARRATIVE: CASE EVENT DATE: 20090301
